FAERS Safety Report 24458512 (Version 1)
Quarter: 2024Q4

REPORT INFORMATION
  Report Type: Other
  Country: TR (occurrence: TR)
  Receive Date: 20241018
  Receipt Date: 20241018
  Transmission Date: 20250115
  Serious: Yes (Death)
  Sender: WOODWARD PHARMA SERVICES
  Company Number: TR-WW-2024-39387422

PATIENT
  Age: 15 Year
  Sex: Male

DRUGS (1)
  1. FLUCONAZOLE [Suspect]
     Active Substance: FLUCONAZOLE
     Indication: Cryptococcosis
     Route: 042

REACTIONS (5)
  - Drug ineffective [Fatal]
  - Pancreatitis [Fatal]
  - Pneumonia [Fatal]
  - Gastrointestinal haemorrhage [Fatal]
  - Shock [Fatal]
